FAERS Safety Report 4678287-X (Version None)
Quarter: 2005Q2

REPORT INFORMATION
  Report Type: 
  Country: None (occurrence: None)
  Receive Date: 20050527
  Receipt Date: 20050512
  Transmission Date: 20051028
  Serious: Yes (Congenital Anomaly, Other)
  Sender: FDA-Public Use
  Company Number: 8010616

PATIENT
  Sex: Male

DRUGS (9)
  1. KEPPRA [Suspect]
     Indication: EPILEPSY
     Dosage: 2000 MG/D TRP
     Route: 064
     Dates: start: 20040101, end: 20040101
  2. KEPPRA [Suspect]
     Indication: EPILEPSY
     Dosage: 1500 MG /D TRP
     Route: 064
     Dates: start: 20040101, end: 20040101
  3. ANDAPSIN [Concomitant]
  4. NIFEREX [Concomitant]
  5. KEPPRA [Suspect]
     Indication: EPILEPSY
     Dosage: 1000 MG/ D TRP
     Route: 064
     Dates: start: 20040101, end: 20050206
  6. HERMOLEPSIN [Suspect]
     Indication: EPILEPSY
     Dosage: 600 MG /D TRP
     Route: 064
     Dates: start: 20040101, end: 20040101
  7. HERMOLEPSIN [Suspect]
     Indication: EPILEPSY
     Dosage: 300 MG/ D TRP
     Route: 064
     Dates: start: 20050206, end: 20050201
  8. ZINACEF [Suspect]
     Dosage: IV
     Route: 042
     Dates: start: 20050206, end: 20050201
  9. ZINACEF [Suspect]
     Dosage: IV
     Route: 042
     Dates: start: 20050211, end: 20050101

REACTIONS (8)
  - ALANINE AMINOTRANSFERASE INCREASED [None]
  - ASPARTATE AMINOTRANSFERASE INCREASED [None]
  - BLOOD ALKALINE PHOSPHATASE INCREASED [None]
  - BLOOD BILIRUBIN INCREASED [None]
  - C-REACTIVE PROTEIN INCREASED [None]
  - CONGENITAL AORTIC STENOSIS [None]
  - DRUG EXPOSURE DURING PREGNANCY [None]
  - NEONATAL DISORDER [None]
